FAERS Safety Report 10042929 (Version 2)
Quarter: 2014Q2

REPORT INFORMATION
  Report Type: Report from Study
  Country: US (occurrence: US)
  Receive Date: 20140328
  Receipt Date: 20140410
  Transmission Date: 20141212
  Serious: Yes (Death)
  Sender: FDA-Public Use
  Company Number: US-ROCHE-1371778

PATIENT
  Age: 62 Year
  Sex: Male
  Weight: 112.6 kg

DRUGS (13)
  1. ERLOTINIB [Suspect]
     Indication: HEPATOCELLULAR CARCINOMA
     Route: 048
     Dates: start: 20120619, end: 20140225
  2. BEVACIZUMAB [Suspect]
     Indication: HEPATOCELLULAR CARCINOMA
     Dosage: EVERY 2 WEEK
     Route: 042
     Dates: start: 20120619, end: 20140214
  3. LEVAQUIN [Concomitant]
     Dosage: PD
     Route: 048
  4. B COMPLEX [Concomitant]
  5. XANAX [Concomitant]
     Dosage: QD
     Route: 048
  6. SORAFENIB [Concomitant]
     Dosage: QD
     Route: 048
     Dates: start: 20140312
  7. COREG [Concomitant]
     Dosage: 2 TIMES DAILY
     Route: 048
  8. ATROVENT [Concomitant]
     Dosage: 2 NASAL SPRAYS 4 TIMES PER DAY
     Route: 065
  9. L-LYSINE [Concomitant]
     Dosage: PD
     Route: 048
  10. PRILOSEC [Concomitant]
     Dosage: PD
     Route: 048
  11. SUDAFED [Concomitant]
     Dosage: PD
     Route: 048
  12. VITAMIN E [Concomitant]
     Dosage: 800 UNITS ORAL TWO TIMESPER DAY
     Route: 065
  13. LEVAQUIN [Concomitant]
     Dosage: PD
     Route: 048

REACTIONS (1)
  - Cardiac arrest [Fatal]
